FAERS Safety Report 9841534 (Version 1)
Quarter: 2013Q4

REPORT INFORMATION
  Report Type: Spontaneous
  Country: US (occurrence: None)
  Receive Date: 20131211
  Receipt Date: 20131211
  Transmission Date: 20140711
  Serious: Yes (Other)
  Sender: FDA-Public Use
  Company Number: ALL1-2012-02855

PATIENT
  Sex: Female

DRUGS (2)
  1. VYVANSE (LISDEXAMFETAMINE DIMESYLATE) CAPSULE [Suspect]
     Indication: ATTENTION DEFICIT/HYPERACTIVITY DISORDER
     Dosage: 1X/DAY
     Route: 048
     Dates: start: 2007, end: 20120603
  2. INSULIN (INSULIN) [Suspect]

REACTIONS (1)
  - Supraventricular tachycardia [None]
